FAERS Safety Report 14100705 (Version 3)
Quarter: 2017Q4

REPORT INFORMATION
  Report Type: Report from Study
  Country: None (occurrence: TR)
  Receive Date: 20171018
  Receipt Date: 20171102
  Transmission Date: 20180321
  Serious: Yes (Hospitalization)
  Sender: FDA-Public Use
  Company Number: TR-ABBVIE-17K-161-2132198-00

PATIENT
  Age: 72 Year
  Sex: Female
  Weight: 56 kg

DRUGS (11)
  1. KETYA [Concomitant]
     Indication: PARKINSON^S DISEASE
     Route: 048
     Dates: start: 2016
  2. STALEVO [Concomitant]
     Active Substance: CARBIDOPA\ENTACAPONE\LEVODOPA
     Route: 048
  3. PREGABALIN. [Concomitant]
     Active Substance: PREGABALIN
     Indication: BACK PAIN
     Route: 048
     Dates: start: 20171001
  4. RIVOTRIL [Concomitant]
     Active Substance: CLONAZEPAM
     Indication: PARKINSON^S DISEASE
     Route: 048
     Dates: start: 20171001
  5. REQUIP XL [Concomitant]
     Active Substance: ROPINIROLE HYDROCHLORIDE
     Indication: PARKINSON^S DISEASE
     Route: 048
     Dates: start: 20171016
  6. STALEVO [Concomitant]
     Active Substance: CARBIDOPA\ENTACAPONE\LEVODOPA
     Indication: PARKINSON^S DISEASE
     Route: 048
  7. MOTILIUM [Concomitant]
     Active Substance: DOMPERIDONE
     Indication: PARKINSON^S DISEASE
     Route: 048
     Dates: start: 2007
  8. OMEREF [Concomitant]
     Indication: GASTRIC DISORDER
     Route: 042
     Dates: start: 20171001
  9. DUODOPA [Suspect]
     Active Substance: CARBIDOPA\LEVODOPA
     Dosage: MORNING DOSE(ML):6.00??CONTINOUS DOSE(ML):2.00??EXTRA DOSE(ML):1.00
     Route: 050
     Dates: start: 20171025
  10. DUODOPA [Suspect]
     Active Substance: CARBIDOPA\LEVODOPA
     Indication: PARKINSON^S DISEASE
     Dosage: MORNING DOSE(ML):6.00??CONTINOUS DOSE(ML):2.00??EXTRA DOSE(ML):1.00
     Route: 050
     Dates: start: 20170912, end: 20171016
  11. OMEREF [Concomitant]
     Indication: PROPHYLAXIS

REACTIONS (3)
  - Dyspnoea [Recovered/Resolved]
  - Abdominal pain [Recovered/Resolved]
  - Pneumoperitoneum [Recovered/Resolved]

NARRATIVE: CASE EVENT DATE: 20171013
